FAERS Safety Report 9979370 (Version 2)
Quarter: 2014Q1

REPORT INFORMATION
  Report Type: Report from Study
  Country: US (occurrence: US)
  Receive Date: 20140306
  Receipt Date: 20140306
  Transmission Date: 20141002
  Serious: Yes (Hospitalization, Other)
  Sender: FDA-Public Use
  Company Number: US-ABBVIE-11P-163-0844311-00

PATIENT
  Age: 58 Year
  Sex: Female

DRUGS (15)
  1. HUMIRA 40 MG/0.8 ML PEN [Suspect]
     Indication: RHEUMATOID ARTHRITIS
     Route: 058
     Dates: start: 200306, end: 20061225
  2. HUMIRA 40 MG/0.8 ML PEN [Suspect]
     Route: 058
     Dates: start: 20070115, end: 200802
  3. HUMIRA 40 MG/0.8 ML PEN [Suspect]
     Route: 058
     Dates: start: 201101
  4. CLARITIN [Concomitant]
     Indication: ALLERGIC SINUSITIS
  5. TRIAMTERENE [Concomitant]
     Indication: FLUID RETENTION
     Dosage: 75/50MG DAILY
  6. METHOTREXATE [Concomitant]
     Indication: RHEUMATOID ARTHRITIS
  7. NEXIUM [Concomitant]
     Indication: GASTROOESOPHAGEAL REFLUX DISEASE
  8. POTASSIUM [Concomitant]
     Indication: MINERAL SUPPLEMENTATION
  9. PREDNISONE [Concomitant]
     Indication: RHEUMATOID ARTHRITIS
  10. FOLIC ACID [Concomitant]
     Indication: RHEUMATOID ARTHRITIS
  11. CELEBREX [Concomitant]
     Indication: RHEUMATOID ARTHRITIS
  12. PLAQUENIL [Concomitant]
     Indication: RHEUMATOID ARTHRITIS
  13. TRAMADOL [Concomitant]
     Indication: PAIN
  14. VERAPAMIL [Concomitant]
     Indication: CARDIAC DISORDER
  15. VERAMYST [Concomitant]
     Indication: ALLERGIC SINUSITIS
     Route: 045

REACTIONS (13)
  - Arthralgia [Recovered/Resolved]
  - Staphylococcal infection [Recovered/Resolved]
  - Urinary tract infection [Recovered/Resolved]
  - Acarodermatitis [Recovered/Resolved]
  - Bronchitis [Recovered/Resolved]
  - Pruritus generalised [Not Recovered/Not Resolved]
  - Insomnia [Recovered/Resolved]
  - Hiatus hernia [Unknown]
  - Cellulitis [Unknown]
  - Diverticulum [Unknown]
  - Hypertension [Unknown]
  - Oesophageal dilatation [Recovered/Resolved]
  - Pyrexia [Recovered/Resolved]
